FAERS Safety Report 13690306 (Version 2)
Quarter: 2017Q3

REPORT INFORMATION
  Report Type: Report from Study
  Country: IT (occurrence: IT)
  Receive Date: 20170626
  Receipt Date: 20170706
  Transmission Date: 20171127
  Serious: Yes (Hospitalization, Other)
  Sender: FDA-Public Use
  Company Number: IT-MYLANLABS-2017M1037678

PATIENT

DRUGS (3)
  1. DALERON [Suspect]
     Active Substance: ACETAMINOPHEN
     Indication: PRODUCT USED FOR UNKNOWN INDICATION
     Dosage: 3500 MG, TOTAL
     Route: 048
     Dates: start: 20170521, end: 20170521
  2. KLACID [Suspect]
     Active Substance: CLARITHROMYCIN
     Indication: PRODUCT USED FOR UNKNOWN INDICATION
     Dosage: 3000 MG, TOTAL
     Route: 048
     Dates: start: 20170521, end: 20170521
  3. ORAXIM [Suspect]
     Active Substance: CEFUROXIME AXETIL
     Indication: PRODUCT USED FOR UNKNOWN INDICATION
     Dosage: 3000 MG, TOTAL
     Route: 048
     Dates: start: 20170521, end: 20170521

REACTIONS (2)
  - Intentional overdose [Recovered/Resolved]
  - Drug abuse [Recovered/Resolved]

NARRATIVE: CASE EVENT DATE: 20170521
